FAERS Safety Report 17815423 (Version 1)
Quarter: 2020Q2

REPORT INFORMATION
  Report Type: Spontaneous
  Country: US (occurrence: US)
  Receive Date: 20200522
  Receipt Date: 20200522
  Transmission Date: 20200714
  Serious: Yes (Other)
  Sender: FDA-Public Use
  Company Number: US-KYOWAKIRIN-2020BKK008067

PATIENT

DRUGS (1)
  1. NOURIANZ [Suspect]
     Active Substance: ISTRADEFYLLINE
     Indication: PARKINSON^S DISEASE
     Dosage: 20 MG, DAILY
     Route: 048
     Dates: start: 20200330, end: 20200501

REACTIONS (3)
  - Sexually inappropriate behaviour [Unknown]
  - Hallucination [Unknown]
  - Compulsions [Unknown]

NARRATIVE: CASE EVENT DATE: 2020
